FAERS Safety Report 11084216 (Version 2)
Quarter: 2015Q2

REPORT INFORMATION
  Report Type: Spontaneous
  Country: FR (occurrence: FR)
  Receive Date: 20150502
  Receipt Date: 20150515
  Transmission Date: 20150821
  Serious: Yes (Life-Threatening, Hospitalization)
  Sender: FDA-Public Use
  Company Number: FR-SUN PHARMACEUTICAL INDUSTRIES LTD-2015RR-96480

PATIENT
  Age: 50 Year
  Sex: Female

DRUGS (2)
  1. TRAMADOL [Suspect]
     Active Substance: TRAMADOL
     Indication: PRODUCT USED FOR UNKNOWN INDICATION
     Dosage: 39 G, SINGLE
     Route: 048
  2. ALPRAZOLAM. [Interacting]
     Active Substance: ALPRAZOLAM
     Indication: PRODUCT USED FOR UNKNOWN INDICATION
     Dosage: 15 G, SINGLE
     Route: 048

REACTIONS (5)
  - Toxicity to various agents [Recovering/Resolving]
  - Cardiogenic shock [Recovering/Resolving]
  - Drug interaction [Recovering/Resolving]
  - Intentional overdose [Recovering/Resolving]
  - Epilepsy [Recovering/Resolving]
